FAERS Safety Report 9525698 (Version 3)
Quarter: 2013Q4

REPORT INFORMATION
  Report Type: Spontaneous
  Country: US (occurrence: US)
  Receive Date: 20130916
  Receipt Date: 20131113
  Transmission Date: 20140711
  Serious: Yes (Death)
  Sender: FDA-Public Use
  Company Number: US-SANOFI-AVENTIS-2013SA090767

PATIENT
  Age: 72 Year
  Sex: Male

DRUGS (8)
  1. RENVELA [Suspect]
     Indication: RENAL FAILURE CHRONIC
     Dosage: 2W/ MEALS, 2X DAY, 1W/ SNACKS
     Route: 048
     Dates: start: 20101121, end: 20130910
  2. CRESTOR [Concomitant]
     Dates: start: 20101122
  3. PANTOPRAZOLE [Concomitant]
     Dates: start: 20130813
  4. FAMOTIDINE [Concomitant]
     Dates: start: 20130813
  5. STARLIX [Concomitant]
     Dosage: 120 MG/60 MG
     Dates: start: 20110511
  6. NEPHROCAPS [Concomitant]
     Dates: start: 20110430
  7. COUMADIN [Concomitant]
     Dates: start: 20111111
  8. FOLIC ACID [Concomitant]
     Dates: start: 20101122

REACTIONS (1)
  - Cardiac arrest [Fatal]
